FAERS Safety Report 21320840 (Version 2)
Quarter: 2022Q3

REPORT INFORMATION
  Report Type: Spontaneous
  Country: US (occurrence: US)
  Receive Date: 20220912
  Receipt Date: 20220914
  Transmission Date: 20221027
  Serious: No
  Sender: FDA-Public Use
  Company Number: US-CADILA HEALTHCARE LIMITED-US-ZYDUS-073522

PATIENT

DRUGS (2)
  1. MESALAMINE [Suspect]
     Active Substance: MESALAMINE
     Indication: Abnormal faeces
     Dosage: UNK, QD
     Route: 054
     Dates: start: 20211214, end: 20211228
  2. MESALAMINE [Suspect]
     Active Substance: MESALAMINE
     Indication: Product use in unapproved indication

REACTIONS (2)
  - Vaginal discharge [Recovered/Resolved]
  - Product use in unapproved indication [Recovered/Resolved]

NARRATIVE: CASE EVENT DATE: 20211214
